FAERS Safety Report 19832456 (Version 1)
Quarter: 2021Q3

REPORT INFORMATION
  Report Type: Spontaneous
  Country: CN (occurrence: CN)
  Receive Date: 20210914
  Receipt Date: 20210914
  Transmission Date: 20211014
  Serious: Yes (Hospitalization)
  Sender: FDA-Public Use
  Company Number: CN-GLAXOSMITHKLINE-CNCH2021APC062752

PATIENT
  Age: 61 Year
  Sex: Female
  Weight: 69 kg

DRUGS (3)
  1. GANMAOLING GRANULES (HERBALS) [Suspect]
     Active Substance: HERBALS
     Indication: PYREXIA
     Dosage: UNK
  2. FENBID (IBUPROFEN) [Suspect]
     Active Substance: IBUPROFEN
     Indication: PYREXIA
     Dosage: 0.4 G, QD
     Route: 048
     Dates: start: 20210824, end: 20210827
  3. CEPHALOSPORIN ANTIBIOTICS (NOS) [Suspect]
     Active Substance: UNSPECIFIED INGREDIENT
     Indication: PYREXIA
     Dosage: UNK

REACTIONS (7)
  - Pruritus [Recovering/Resolving]
  - Blister [Recovering/Resolving]
  - Oral mucosa erosion [Recovering/Resolving]
  - Drug eruption [Recovering/Resolving]
  - Conjunctival hyperaemia [Recovering/Resolving]
  - Erythema [Recovering/Resolving]
  - Vulvar erosion [Recovering/Resolving]

NARRATIVE: CASE EVENT DATE: 20210828
